FAERS Safety Report 5507257-4 (Version None)
Quarter: 2007Q4

REPORT INFORMATION
  Report Type: 
  Country: None (occurrence: None)
  Receive Date: 20071106
  Receipt Date: 20071029
  Transmission Date: 20080405
  Serious: Yes (Other)
  Sender: FDA-Public Use
  Company Number: PHBS2007PH18378

PATIENT
  Age: 51 Year
  Sex: Male

DRUGS (8)
  1. BACLOFEN [Suspect]
     Indication: MUSCLE SPASTICITY
     Dosage: 25 MG, QID
     Route: 048
  2. BACLOFEN [Suspect]
     Indication: MUSCLE SPASTICITY
     Route: 037
  3. DIAZEPAM [Concomitant]
     Dosage: 2 MG, QID
  4. TRAMADOL HCL [Concomitant]
     Dosage: 100 MG, QD
  5. GABAPENTIN [Concomitant]
     Dosage: 300 MG, BID
  6. HYDROMORPHONE HCL [Concomitant]
  7. CLONIDINE [Concomitant]
     Dosage: 25 UG, UNK
  8. OPIOIDS [Concomitant]

REACTIONS (4)
  - DRUG INEFFECTIVE [None]
  - MUSCULAR WEAKNESS [None]
  - ORTHOSTATIC HYPOTENSION [None]
  - SOMNOLENCE [None]
